FAERS Safety Report 5895905-9 (Version None)
Quarter: 2008Q3

REPORT INFORMATION
  Report Type: 
  Country: None (occurrence: None)
  Receive Date: 20080924
  Receipt Date: 20080919
  Transmission Date: 20090109
  Serious: Yes (Other)
  Sender: FDA-Public Use
  Company Number: US-ELI_LILLY_AND_COMPANY-US200809004526

PATIENT
  Age: 80 Year
  Sex: Female

DRUGS (1)
  1. HUMULIN N [Suspect]
     Dosage: 25 U, 2/D
     Dates: start: 19780101

REACTIONS (4)
  - BLINDNESS [None]
  - CATARACT [None]
  - CORONARY ARTERY OCCLUSION [None]
  - MALAISE [None]
